FAERS Safety Report 7041312-5 (Version None)
Quarter: 2010Q4

REPORT INFORMATION
  Report Type: 
  Country: None (occurrence: None)
  Receive Date: 20101013
  Receipt Date: 20101004
  Transmission Date: 20110411
  Serious: Yes (Death, Hospitalization)
  Sender: FDA-Public Use
  Company Number: PHHO2010DE09789

PATIENT
  Sex: Male
  Weight: 111.8 kg

DRUGS (2)
  1. CERTICAN [Suspect]
     Indication: LIVER TRANSPLANT
     Dosage: 2 MG, BID
     Route: 048
     Dates: start: 20100114, end: 20100924
  2. TACROLIMUS COMP-TAC+ [Suspect]
     Indication: LIVER TRANSPLANT
     Dosage: 1.5 MG, BID
     Route: 048
     Dates: start: 20091215, end: 20100924

REACTIONS (19)
  - ABDOMINAL PAIN [None]
  - ABSCESS DRAINAGE [None]
  - BILE DUCT STENOSIS [None]
  - BILE DUCT STENT INSERTION [None]
  - BILIARY DILATATION [None]
  - BILIARY ISCHAEMIA [None]
  - BLOOD BILIRUBIN INCREASED [None]
  - CHILLS [None]
  - CHOLESTASIS [None]
  - CONCOMITANT DISEASE PROGRESSION [None]
  - DEVICE OCCLUSION [None]
  - GRAFT LOSS [None]
  - HEPATIC FIBROSIS [None]
  - HYPERTRANSAMINASAEMIA [None]
  - ILEUS [None]
  - LIVER ABSCESS [None]
  - MULTI-ORGAN FAILURE [None]
  - PYREXIA [None]
  - SEPSIS [None]
